FAERS Safety Report 8311190-2 (Version None)
Quarter: 2012Q2

REPORT INFORMATION
  Report Type: 
  Country: None (occurrence: None)
  Receive Date: 20120425
  Receipt Date: 20120126
  Transmission Date: 20120825
  Serious: No
  Sender: FDA-Public Use
  Company Number: US-MYLANLABS-2011S1020897

PATIENT
  Age: 82 Year
  Sex: Female
  Weight: 56.25 kg

DRUGS (3)
  1. NITROFURANTOIN MONOHYDRATE/MACROCRYSTALS [Suspect]
     Indication: URINARY TRACT INFECTION
     Route: 048
     Dates: start: 20110825, end: 20110908
  2. LOVASTATIN [Concomitant]
     Indication: BLOOD CHOLESTEROL INCREASED
     Dosage: 20MG X 2 QHS
  3. ASPIRIN [Concomitant]

REACTIONS (4)
  - NAUSEA [None]
  - DECREASED APPETITE [None]
  - RASH [None]
  - FATIGUE [None]
